FAERS Safety Report 12804342 (Version 1)
Quarter: 2016Q4

REPORT INFORMATION
  Report Type: Spontaneous
  Country: FR (occurrence: FR)
  Receive Date: 20161003
  Receipt Date: 20161003
  Transmission Date: 20170207
  Serious: Yes (Hospitalization)
  Sender: FDA-Public Use
  Company Number: FR-PFIZER INC-2016448171

PATIENT
  Age: 27 Year
  Sex: Female

DRUGS (6)
  1. ENDOXAN /00021101/ [Suspect]
     Active Substance: CYCLOPHOSPHAMIDE
     Indication: B-CELL LYMPHOMA
     Dosage: UNK, CYCLIC
     Route: 042
     Dates: start: 20160323
  2. VINCRISTINE SULFATE. [Suspect]
     Active Substance: VINCRISTINE SULFATE
     Indication: B-CELL LYMPHOMA
     Dosage: UNK, CYCLIC
     Route: 042
     Dates: start: 20160323
  3. MABTHERA [Suspect]
     Active Substance: RITUXIMAB
     Indication: B-CELL LYMPHOMA
     Dosage: UNK, CYCLIC
     Route: 042
     Dates: start: 20160323
  4. DOXORUBICIN HCL [Suspect]
     Active Substance: DOXORUBICIN HYDROCHLORIDE
     Indication: B-CELL LYMPHOMA
     Dosage: UNK, CYCLIC
     Route: 042
     Dates: start: 20160323
  5. PREDNISONE. [Concomitant]
     Active Substance: PREDNISONE
     Indication: B-CELL LYMPHOMA
     Dosage: UNK
     Dates: start: 20160323
  6. METHOTREXATE SODIUM. [Suspect]
     Active Substance: METHOTREXATE SODIUM
     Indication: B-CELL LYMPHOMA
     Dosage: UNK, CYCLIC
     Route: 037
     Dates: start: 20160323

REACTIONS (2)
  - Agranulocytosis [Recovered/Resolved]
  - Bronchitis [Recovered/Resolved]

NARRATIVE: CASE EVENT DATE: 20160326
